FAERS Safety Report 25384088 (Version 1)
Quarter: 2025Q2

REPORT INFORMATION
  Report Type: Spontaneous
  Country: US (occurrence: US)
  Receive Date: 20250602
  Receipt Date: 20250602
  Transmission Date: 20250716
  Serious: No
  Sender: Steriscience PTE
  Company Number: US-STERISCIENCE B.V.-2024-ST-001524

PATIENT
  Age: 34 Year
  Sex: Female

DRUGS (9)
  1. METOPROLOL [Suspect]
     Active Substance: METOPROLOL
     Indication: Ventricular tachycardia
     Dosage: 5 MILLIGRAM, Q4H
     Route: 042
  2. DOXORUBICIN HYDROCHLORIDE [Suspect]
     Active Substance: DOXORUBICIN HYDROCHLORIDE
     Indication: Invasive ductal breast carcinoma
     Route: 065
  3. DOXORUBICIN HYDROCHLORIDE [Suspect]
     Active Substance: DOXORUBICIN HYDROCHLORIDE
     Route: 042
  4. CYCLOPHOSPHAMIDE [Suspect]
     Active Substance: CYCLOPHOSPHAMIDE
     Indication: Invasive ductal breast carcinoma
     Route: 065
  5. CYCLOPHOSPHAMIDE [Suspect]
     Active Substance: CYCLOPHOSPHAMIDE
     Route: 042
  6. CEFTRIAXONE [Suspect]
     Active Substance: CEFTRIAXONE
     Indication: Pneumonia
     Route: 065
  7. METOPROLOL TARTRATE [Suspect]
     Active Substance: METOPROLOL TARTRATE
     Indication: Ventricular tachycardia
     Route: 048
  8. METOPROLOL TARTRATE [Suspect]
     Active Substance: METOPROLOL TARTRATE
     Route: 048
  9. OXYGEN [Suspect]
     Active Substance: OXYGEN
     Indication: Pneumonia
     Route: 065

REACTIONS (2)
  - Off label use [Unknown]
  - Maternal exposure during pregnancy [Unknown]
